FAERS Safety Report 18093997 (Version 2)
Quarter: 2020Q3

REPORT INFORMATION
  Report Type: Report from Study
  Country: KR (occurrence: KR)
  Receive Date: 20200730
  Receipt Date: 20200814
  Transmission Date: 20201103
  Serious: Yes (Hospitalization)
  Sender: FDA-Public Use
  Company Number: KR-PFIZER INC-2020285958

PATIENT
  Age: 46 Year
  Sex: Female
  Weight: 63 kg

DRUGS (4)
  1. AVELUMAB [Suspect]
     Active Substance: AVELUMAB
     Dosage: 674 MG
     Route: 042
     Dates: start: 20200715, end: 20200715
  2. PACLITAXEL. [Suspect]
     Active Substance: PACLITAXEL
     Dosage: 107.9 MG
     Dates: start: 20200715
  3. AVELUMAB [Suspect]
     Active Substance: AVELUMAB
     Indication: ANGIOSARCOMA
     Dosage: 674 MG, CYCLIC
     Route: 042
     Dates: start: 20190711
  4. PACLITAXEL. [Suspect]
     Active Substance: PACLITAXEL
     Indication: ANGIOSARCOMA
     Dosage: 136 MG, CYCLIC
     Dates: start: 20190711

REACTIONS (1)
  - Pericarditis [Recovered/Resolved]

NARRATIVE: CASE EVENT DATE: 20200719
